FAERS Safety Report 11219885 (Version 1)
Quarter: 2015Q2

REPORT INFORMATION
  Report Type: Spontaneous
  Country: DE (occurrence: None)
  Receive Date: 20150624
  Receipt Date: 20150624
  Transmission Date: 20150821
  Serious: Yes (Other)
  Sender: FDA-Public Use
  Company Number: HRA-CDB20140094

PATIENT
  Age: 38 Year
  Sex: Female

DRUGS (1)
  1. ELLAONE [Suspect]
     Active Substance: ULIPRISTAL ACETATE
     Indication: POST COITAL CONTRACEPTION
     Dosage: 30 MG, 1 IN 1 D
     Dates: start: 20140601, end: 20140601

REACTIONS (2)
  - Pregnancy after post coital contraception [None]
  - Abortion induced [None]

NARRATIVE: CASE EVENT DATE: 2014
